FAERS Safety Report 16383308 (Version 7)
Quarter: 2019Q4

REPORT INFORMATION
  Report Type: Spontaneous
  Country: US (occurrence: US)
  Receive Date: 20190603
  Receipt Date: 20191122
  Transmission Date: 20200122
  Serious: No
  Sender: FDA-Public Use
  Company Number: US-PFIZER INC-2019231621

PATIENT
  Age: 58 Year
  Sex: Male
  Weight: 71.2 kg

DRUGS (3)
  1. LYRICA [Suspect]
     Active Substance: PREGABALIN
     Dosage: 150 MG, 2X/DAY
     Route: 048
  2. LYRICA [Suspect]
     Active Substance: PREGABALIN
     Indication: NEUROPATHY PERIPHERAL
     Dosage: 150 MG, UNK
     Route: 048
  3. LYRICA [Suspect]
     Active Substance: PREGABALIN
     Dosage: 200 MG, TWICE DAILY (1 CAP ORAL TWICE A DAY FOR 30 DAYS)
     Route: 048

REACTIONS (5)
  - Burning sensation [Unknown]
  - Insomnia [Unknown]
  - Speech disorder [Unknown]
  - Pruritus [Unknown]
  - Pain [Unknown]
